FAERS Safety Report 4308612-0 (Version None)
Quarter: 2004Q1

REPORT INFORMATION
  Report Type: 
  Country: None (occurrence: None)
  Receive Date: 20040227
  Receipt Date: 20040217
  Transmission Date: 20041129
  Serious: Yes (Hospitalization)
  Sender: FDA-Public Use
  Company Number: US-SHR-04-021317

PATIENT
  Age: 50 Year
  Sex: Female

DRUGS (4)
  1. BETASERON [Suspect]
     Indication: MULTIPLE SCLEROSIS
     Dosage: 6.4 MIU, EVERY 2D, SUBCUTANEOUS
     Route: 058
     Dates: start: 19960101
  2. CORTICOSTEROIDS ( ) [Suspect]
     Dosage: ^HIGH DOSE X 5 DAYS, INTRAVENOUS
     Route: 042
     Dates: start: 20040101, end: 20040101
  3. PREDNISONE [Suspect]
     Dosage: TAPER, ORAL
     Route: 048
     Dates: start: 20040101, end: 20040101
  4. FOSAMAX [Concomitant]

REACTIONS (5)
  - ABNORMAL BEHAVIOUR [None]
  - FACE OEDEMA [None]
  - FALL [None]
  - MENTAL DISORDER [None]
  - MULTIPLE SCLEROSIS [None]
